FAERS Safety Report 9272183 (Version 1)
Quarter: 2013Q2

REPORT INFORMATION
  Report Type: Report from Study
  Country: US (occurrence: US)
  Receive Date: 20130506
  Receipt Date: 20130506
  Transmission Date: 20140414
  Serious: Yes (Other)
  Sender: FDA-Public Use
  Company Number: US-GLAXOSMITHKLINE-B0889211A

PATIENT
  Sex: 0

DRUGS (2)
  1. NICOTINE [Suspect]
     Indication: EX-TOBACCO USER
     Dosage: 21MG PER DAY
     Route: 062
  2. NICOTINE [Suspect]
     Indication: EX-TOBACCO USER
     Dosage: 4MG PER DAY
     Route: 048

REACTIONS (2)
  - Myocardial infarction [Unknown]
  - Chest pain [Unknown]
